FAERS Safety Report 8931965 (Version 2)
Quarter: 2013Q1

REPORT INFORMATION
  Report Type: Spontaneous
  Country: CA (occurrence: CA)
  Receive Date: 20121128
  Receipt Date: 20130121
  Transmission Date: 20140127
  Serious: Yes (Hospitalization)
  Sender: FDA-Public Use
  Company Number: CA-ELI_LILLY_AND_COMPANY-CA201211005855

PATIENT
  Age: 59 Year
  Sex: Female
  Weight: 45.7 kg

DRUGS (7)
  1. FORTEO [Suspect]
     Indication: OSTEOPOROSIS
     Dosage: 20 UG, QD
     Route: 058
     Dates: start: 20120928, end: 20121005
  2. RITALIN [Concomitant]
  3. PULMICORT [Concomitant]
  4. COUMADIN [Concomitant]
  5. VITAMIN A [Concomitant]
  6. CALCIUM [Concomitant]
  7. CARBOCAL [Concomitant]
     Dosage: 400 UNK, UNK

REACTIONS (3)
  - Abdominal pain upper [Recovered/Resolved]
  - Drug hypersensitivity [Recovered/Resolved]
  - Nausea [Unknown]
